FAERS Safety Report 5564696-3 (Version None)
Quarter: 2007Q4

REPORT INFORMATION
  Report Type: 
  Country: None (occurrence: None)
  Receive Date: 20071218
  Receipt Date: 20071206
  Transmission Date: 20080405
  Serious: Yes (Other)
  Sender: FDA-Public Use
  Company Number: US-AMGEN-STX255914

PATIENT
  Sex: Female

DRUGS (2)
  1. ENBREL [Suspect]
     Indication: PSORIATIC ARTHROPATHY
     Route: 058
     Dates: start: 20040422
  2. ENBREL [Suspect]
     Indication: PSORIASIS

REACTIONS (4)
  - JOINT DESTRUCTION [None]
  - JOINT DISLOCATION [None]
  - PAIN IN JAW [None]
  - TOOTH DISCOLOURATION [None]
